FAERS Safety Report 25750545 (Version 5)
Quarter: 2025Q4

REPORT INFORMATION
  Report Type: Spontaneous
  Country: US (occurrence: US)
  Receive Date: 20250902
  Receipt Date: 20251107
  Transmission Date: 20260117
  Serious: Yes (Other)
  Sender: BAYER HEALTHCARE PHARMACEUTICALS INC.
  Company Number: US-BAYER-2025A113776

PATIENT
  Age: 28 Year
  Sex: Female
  Weight: 74.8 kg

DRUGS (2)
  1. KYLEENA [Suspect]
     Active Substance: LEVONORGESTREL
     Indication: Contraception
     Dosage: 17.5?G/DAY
     Route: 015
     Dates: start: 20250421, end: 20250911
  2. LIDOCAINE [Concomitant]
     Active Substance: LIDOCAINE
     Indication: Analgesic therapy
     Dosage: UNK
     Dates: start: 20250421

REACTIONS (6)
  - Device breakage [Recovered/Resolved]
  - Device dislocation [Recovered/Resolved]
  - Device dislocation [Recovered/Resolved]
  - Complication of device removal [None]
  - Malaise [None]
  - Emotional distress [None]

NARRATIVE: CASE EVENT DATE: 20250617
